FAERS Safety Report 4877901-3 (Version None)
Quarter: 2006Q1

REPORT INFORMATION
  Report Type: 
  Country: None (occurrence: None)
  Receive Date: 20060109
  Receipt Date: 20051227
  Transmission Date: 20060701
  Serious: Yes (Other)
  Sender: FDA-Public Use
  Company Number: 2006000917

PATIENT
  Age: 55 Year
  Sex: Male
  Weight: 285 kg

DRUGS (6)
  1. BEXTRA [Suspect]
     Indication: ARTHRITIS
     Dosage: (1 IN 1 D), ORAL
     Route: 048
     Dates: start: 20020101
  2. LIPITOR [Concomitant]
  3. GLUCOPHAGE [Concomitant]
  4. ZOCOR [Concomitant]
  5. LASIX [Concomitant]
  6. K-DUR 10 [Concomitant]

REACTIONS (1)
  - TRANSIENT ISCHAEMIC ATTACK [None]
